FAERS Safety Report 12541418 (Version 2)
Quarter: 2016Q3

REPORT INFORMATION
  Report Type: Report from Study
  Country: PL (occurrence: PL)
  Receive Date: 20160708
  Receipt Date: 20160928
  Transmission Date: 20161109
  Serious: Yes (Hospitalization)
  Sender: FDA-Public Use
  Company Number: PHHO2010PL021634

PATIENT
  Age: 73 Year
  Sex: Male
  Weight: 69 kg

DRUGS (8)
  1. CHLORAMBUCIL [Suspect]
     Active Substance: CHLORAMBUCIL
     Indication: CHRONIC LYMPHOCYTIC LEUKAEMIA
     Dosage: 10 MG/M2 DAYS 1-7 EVERY 28 DAYS
     Route: 048
     Dates: start: 20100512, end: 20101020
  2. NIVALIN [Concomitant]
     Active Substance: GALANTAMINE HYDROBROMIDE
     Indication: FACIAL PARESIS
     Dosage: 5 MG, ONCE/SINGLE
     Route: 030
     Dates: start: 20101110, end: 20101216
  3. BIOTAKSYM [Concomitant]
     Active Substance: CEFOTAXIME SODIUM
     Indication: PRODUCT USED FOR UNKNOWN INDICATION
     Dosage: UNK
     Route: 065
  4. CIPRONEX [Concomitant]
     Active Substance: CIPROFLOXACIN
     Indication: EAR INFECTION
     Dosage: 400 MG, BID
     Route: 042
     Dates: start: 20101109, end: 20101118
  5. THIAMINE HYDROCHLORIDE. [Concomitant]
     Active Substance: THIAMINE HYDROCHLORIDE
     Indication: FACIAL PARESIS
     Dosage: 10 MG, ONCE/SINGLE
     Route: 030
     Dates: start: 20101110, end: 20101118
  6. VITAMIN B12 [Concomitant]
     Active Substance: CYANOCOBALAMIN
     Indication: FACIAL PARESIS
     Dosage: 1000 UG, QD
     Route: 030
     Dates: start: 20101110, end: 20101118
  7. OFATUMUMAB [Suspect]
     Active Substance: OFATUMUMAB
     Indication: CHRONIC LYMPHOCYTIC LEUKAEMIA
     Dosage: 300 MG AT DAY 1, 1000 MG AT DAY 8 FOLLOWED BY 1000 MG EVERY 28 DAYS
     Route: 042
     Dates: start: 20100512
  8. MILGAMMA N                         /00176001/ [Concomitant]
     Indication: FACIAL PARESIS
     Dosage: UNK
     Route: 030
     Dates: start: 20101118, end: 20101216

REACTIONS (1)
  - Herpes zoster [Recovered/Resolved]

NARRATIVE: CASE EVENT DATE: 20101031
